FAERS Safety Report 9857631 (Version 1)
Quarter: 2014Q1

REPORT INFORMATION
  Report Type: Spontaneous
  Country: US (occurrence: US)
  Receive Date: 20140131
  Receipt Date: 20140131
  Transmission Date: 20141002
  Serious: Yes (Other)
  Sender: FDA-Public Use
  Company Number: US-BIOGENIDEC-2014BI009059

PATIENT
  Sex: Female

DRUGS (1)
  1. TYSABRI [Suspect]
     Indication: EXPOSURE VIA FATHER
     Dates: start: 20130320

REACTIONS (1)
  - Abortion spontaneous [Recovered/Resolved]
